FAERS Safety Report 5613135-2 (Version None)
Quarter: 2008Q1

REPORT INFORMATION
  Report Type: 
  Country: None (occurrence: None)
  Receive Date: 20080129
  Receipt Date: 20080115
  Transmission Date: 20080703
  Serious: Yes (Hospitalization, Other)
  Sender: FDA-Public Use
  Company Number: 230912J07USA

PATIENT
  Age: 70 Year
  Sex: Female

DRUGS (12)
  1. REBIF [Suspect]
     Indication: MULTIPLE SCLEROSIS
     Dosage: 8.8 MG, 3 IN 1 WEEKS, SUBCUTANEOUS
     Route: 058
     Dates: start: 20071127, end: 20071203
  2. COUMADIN [Suspect]
     Indication: PULMONARY EMBOLISM
     Dates: end: 20071203
  3. FOSAMAX [Concomitant]
  4. LASIX             (FUROSEMIDE /00032601/) [Concomitant]
  5. ZANTAC 150 [Concomitant]
  6. PREDNISONE                          (PREDNISONE /0082701) [Concomitant]
  7. METFORMIN                        (METFORMIN /0082701/) [Concomitant]
  8. ORLISTAT                 (ORLISTAT) [Concomitant]
  9. MULTI-VITAMINS [Concomitant]
  10. PRILOSEC [Concomitant]
  11. METOCLOPRAMIDE                (METOCLOPRAMIDE /00041901/) [Concomitant]
  12. GABAPENTIN [Concomitant]

REACTIONS (10)
  - ANAEMIA [None]
  - CHEST PAIN [None]
  - CONDITION AGGRAVATED [None]
  - DYSPNOEA [None]
  - FATIGUE [None]
  - FEELING OF BODY TEMPERATURE CHANGE [None]
  - INFLUENZA LIKE ILLNESS [None]
  - NAUSEA [None]
  - STARING [None]
  - UNRESPONSIVE TO STIMULI [None]
